FAERS Safety Report 24407101 (Version 3)
Quarter: 2025Q1

REPORT INFORMATION
  Report Type: Spontaneous
  Country: US (occurrence: US)
  Receive Date: 20241007
  Receipt Date: 20250222
  Transmission Date: 20250409
  Serious: No
  Sender: SANOFI AVENTIS
  Company Number: US-SA-2024SA286853

PATIENT
  Age: 18 Year
  Sex: Female
  Weight: 45.35 kg

DRUGS (1)
  1. DUPIXENT [Suspect]
     Active Substance: DUPILUMAB
     Indication: Dermatitis atopic
     Dosage: 300 MG, QOW
     Route: 058
     Dates: start: 20240912

REACTIONS (7)
  - Pigmentation disorder [Unknown]
  - Condition aggravated [Unknown]
  - Swelling face [Unknown]
  - Dry skin [Unknown]
  - Ocular hyperaemia [Unknown]
  - Eye swelling [Unknown]
  - Drug hypersensitivity [Not Recovered/Not Resolved]

NARRATIVE: CASE EVENT DATE: 20240912
